FAERS Safety Report 8728528 (Version 2)
Quarter: 2012Q4

REPORT INFORMATION
  Report Type: 
  Country: PR (occurrence: PR)
  Receive Date: 20120817
  Receipt Date: 20120919
  Transmission Date: 20130627
  Serious: Yes (Other)
  Sender: FDA-Public Use
  Company Number: PR-BAYER-2012-083425

PATIENT
  Age: 37 Year
  Sex: Female
  Weight: 66.21 kg

DRUGS (1)
  1. MIRENA [Suspect]
     Indication: CONTRACEPTION
     Dosage: 20 mcg/24hr, CONT
     Route: 015
     Dates: start: 201107, end: 201202

REACTIONS (14)
  - Vaginal haemorrhage [Recovered/Resolved]
  - Dysmenorrhoea [Recovered/Resolved]
  - Mood altered [None]
  - Pelvic pain [None]
  - Uterine spasm [None]
  - Weight increased [Not Recovered/Not Resolved]
  - Acne [Recovered/Resolved]
  - Migraine [Recovered/Resolved]
  - Nausea [Recovered/Resolved]
  - Vomiting [Recovered/Resolved]
  - Hot flush [Recovered/Resolved]
  - Back pain [None]
  - Hyperhidrosis [None]
  - Uterine cervical pain [Recovered/Resolved]
